FAERS Safety Report 25523628 (Version 2)
Quarter: 2025Q3

REPORT INFORMATION
  Report Type: Report from Study
  Country: US (occurrence: US)
  Receive Date: 20250707
  Receipt Date: 20250813
  Transmission Date: 20251021
  Serious: No
  Sender: SUNOVION
  Company Number: US-SMPA-2025SPA007493AA

PATIENT
  Age: 63 Year
  Sex: Male

DRUGS (8)
  1. ORGOVYX [Suspect]
     Active Substance: RELUGOLIX
     Indication: Prostate cancer
     Route: 048
  2. ORGOVYX [Suspect]
     Active Substance: RELUGOLIX
     Dosage: 120 MG, QD
     Route: 048
     Dates: start: 202404
  3. AMIODARONE [Concomitant]
     Active Substance: AMIODARONE
  4. AMOXICILLIN [Concomitant]
     Active Substance: AMOXICILLIN
  5. LASIX [Concomitant]
     Active Substance: FUROSEMIDE
  6. METOPROLOL TARTRATE [Concomitant]
     Active Substance: METOPROLOL TARTRATE
  7. PRAVASTATIN SODIUM [Concomitant]
     Active Substance: PRAVASTATIN SODIUM
  8. XARELTO [Concomitant]
     Active Substance: RIVAROXABAN

REACTIONS (3)
  - Mood swings [Unknown]
  - Hot flush [Recovering/Resolving]
  - Asthenia [Unknown]
